FAERS Safety Report 13958683 (Version 3)
Quarter: 2019Q1

REPORT INFORMATION
  Report Type: Report from Study
  Country: CA (occurrence: CA)
  Receive Date: 20170912
  Receipt Date: 20190116
  Transmission Date: 20190417
  Serious: Yes (Other)
  Sender: FDA-Public Use
  Company Number: CA-ROCHE-1785978

PATIENT
  Age: 62 Year
  Sex: Female
  Weight: 76.2 kg

DRUGS (11)
  1. RITUXAN [Suspect]
     Active Substance: RITUXIMAB
     Indication: RHEUMATOID ARTHRITIS
     Dosage: DAY 1 AND 15?ON 03/NOV/2017, RECENT INFUSION OF RITUXIAMB
     Route: 042
     Dates: start: 20160627
  2. TECTA [Concomitant]
     Active Substance: PANTOPRAZOLE MAGNESIUM
  3. DIPHENHYDRAMINE HCL [Concomitant]
     Active Substance: DIPHENHYDRAMINE HYDROCHLORIDE
     Indication: PREMEDICATION
     Route: 048
     Dates: start: 20160627
  4. CELEBREX [Concomitant]
     Active Substance: CELECOXIB
  5. PSYLLIUM FIBER [Concomitant]
  6. SYNTHROID [Concomitant]
     Active Substance: LEVOTHYROXINE SODIUM
  7. TYLENOL #1 (CANADA) [Concomitant]
     Active Substance: ACETAMINOPHEN\CAFFEINE\CODEINE PHOSPHATE
     Indication: ARTHRITIS
     Route: 065
  8. EXEMESTANE. [Concomitant]
     Active Substance: EXEMESTANE
  9. PLAQUENIL [Concomitant]
     Active Substance: HYDROXYCHLOROQUINE SULFATE
  10. ACETAMINOPHEN. [Concomitant]
     Active Substance: ACETAMINOPHEN
     Indication: PREMEDICATION
     Route: 048
     Dates: start: 20160627
  11. METHYLPREDNISOLONE. [Concomitant]
     Active Substance: METHYLPREDNISOLONE
     Indication: PREMEDICATION
     Route: 042
     Dates: start: 20160627

REACTIONS (8)
  - Throat tightness [Recovered/Resolved]
  - Blood pressure fluctuation [Unknown]
  - Weight decreased [Unknown]
  - Arthralgia [Unknown]
  - Fibromyalgia [Not Recovered/Not Resolved]
  - Ear pruritus [Recovered/Resolved]
  - Musculoskeletal stiffness [Unknown]
  - Pharyngeal oedema [Recovered/Resolved]

NARRATIVE: CASE EVENT DATE: 20160627
